FAERS Safety Report 17020801 (Version 1)
Quarter: 2019Q4

REPORT INFORMATION
  Report Type: Spontaneous
  Country: US (occurrence: US)
  Receive Date: 20191007
  Receipt Date: 20191007
  Transmission Date: 20200122
  Serious: Yes (Hospitalization)
  Sender: FDA-Public Use
  Company Number: None

PATIENT
  Age: 34 Year
  Sex: Female

DRUGS (26)
  1. TOBRAMYCIN 300MG [Suspect]
     Active Substance: TOBRAMYCIN
     Indication: CYSTIC FIBROSIS
     Route: 055
     Dates: start: 20180516
  2. LEVOTHYROXIN [Concomitant]
     Active Substance: LEVOTHYROXINE
  3. SINGULAIR [Concomitant]
     Active Substance: MONTELUKAST SODIUM
  4. SUDAFED [Concomitant]
     Active Substance: PSEUDOEPHEDRINE HYDROCHLORIDE
  5. ALBUTEROL. [Concomitant]
     Active Substance: ALBUTEROL
  6. AZITHROMYCIN ANHYDROUS. [Concomitant]
     Active Substance: AZITHROMYCIN ANHYDROUS
  7. GABAPENTIN. [Concomitant]
     Active Substance: GABAPENTIN
  8. MEPHYTON [Concomitant]
     Active Substance: PHYTONADIONE
  9. NOVOLOG [Concomitant]
     Active Substance: INSULIN ASPART
  10. RANITIDINE. [Concomitant]
     Active Substance: RANITIDINE
  11. CALCIUM [Concomitant]
     Active Substance: CALCIUM
  12. PANCRELIPASE. [Concomitant]
     Active Substance: PANCRELIPASE
  13. TOBI PODHALER [Concomitant]
     Active Substance: TOBRAMYCIN
  14. OMEPRAZOLE. [Concomitant]
     Active Substance: OMEPRAZOLE
  15. FERREX [Concomitant]
     Active Substance: FERRIC POLYSACCHARIDE COMPLEX
  16. HYDROXYZ [Concomitant]
     Active Substance: HYDROXYZINE HYDROCHLORIDE
  17. NASONEX [Concomitant]
     Active Substance: MOMETASONE FUROATE
  18. VITAMIN E [Concomitant]
     Active Substance: .ALPHA.-TOCOPHEROL
  19. IBUPROPION [Concomitant]
  20. CAYSTON [Concomitant]
     Active Substance: AZTREONAM
  21. LANTUS [Concomitant]
     Active Substance: INSULIN GLARGINE
  22. METOCLOPRAM [Concomitant]
     Active Substance: METOCLOPRAMIDE
  23. MULTIVITAMIN [Concomitant]
     Active Substance: VITAMINS
  24. SYMBICORT [Concomitant]
     Active Substance: BUDESONIDE\FORMOTEROL FUMARATE DIHYDRATE
  25. VANCOMYCIN [Concomitant]
     Active Substance: VANCOMYCIN
  26. XOPENEX [Concomitant]
     Active Substance: LEVALBUTEROL HYDROCHLORIDE

REACTIONS (3)
  - Condition aggravated [None]
  - Hand fracture [None]
  - Cystic fibrosis [None]

NARRATIVE: CASE EVENT DATE: 201909
